FAERS Safety Report 10579572 (Version 1)
Quarter: 2014Q4

REPORT INFORMATION
  Report Type: Spontaneous
  Country: FR (occurrence: FR)
  Receive Date: 20141112
  Receipt Date: 20141112
  Transmission Date: 20150529
  Serious: Yes (Death)
  Sender: FDA-Public Use
  Company Number: FR-ABBVIE-14P-056-1306153-00

PATIENT
  Age: 65 Year
  Sex: Female

DRUGS (6)
  1. ULTIVA [Suspect]
     Active Substance: REMIFENTANIL HYDROCHLORIDE
     Indication: ANAESTHESIA
     Route: 065
     Dates: start: 20140822, end: 20140822
  2. KETANEST [Suspect]
     Active Substance: KETAMINE HYDROCHLORIDE
     Indication: ANAESTHESIA
     Route: 042
     Dates: start: 20140822, end: 20140822
  3. ULTANE [Suspect]
     Active Substance: SEVOFLURANE
     Indication: ANAESTHESIA
     Route: 055
     Dates: start: 20140822, end: 20140822
  4. MIVACRON [Suspect]
     Active Substance: MIVACURIUM CHLORIDE
     Indication: ANAESTHESIA
     Dosage: 20MG/10ML
     Route: 042
     Dates: start: 20140822, end: 20140822
  5. CEFURAOXIME [Suspect]
     Active Substance: CEFUROXIME
     Indication: ANTIBIOTIC PROPHYLAXIS
     Route: 042
     Dates: start: 20140822, end: 20140822
  6. PROPOFOL. [Suspect]
     Active Substance: PROPOFOL
     Indication: ANAESTHESIA
     Route: 042
     Dates: start: 20140822, end: 20140822

REACTIONS (8)
  - Blood pressure decreased [Fatal]
  - Tachycardia [Fatal]
  - Electrocardiogram QRS complex abnormal [Fatal]
  - Erythema [Fatal]
  - Bradycardia [Fatal]
  - Circulatory collapse [Fatal]
  - Mydriasis [None]
  - Oedema [Fatal]

NARRATIVE: CASE EVENT DATE: 20140822
